FAERS Safety Report 7073870-9 (Version None)
Quarter: 2010Q4

REPORT INFORMATION
  Report Type: 
  Country: None (occurrence: None)
  Receive Date: 20101029
  Receipt Date: 20100830
  Transmission Date: 20110411
  Serious: No
  Sender: FDA-Public Use
  Company Number: A0878394A

PATIENT
  Age: 78 Year
  Sex: Female

DRUGS (6)
  1. ADVAIR DISKUS 100/50 [Suspect]
     Indication: COUGH
     Route: 055
     Dates: start: 20100818
  2. PLAVIX [Concomitant]
  3. COUMADIN [Concomitant]
  4. METFORMIN [Concomitant]
  5. METOPROLOL [Concomitant]
  6. LISINOPRIL [Concomitant]

REACTIONS (2)
  - ENERGY INCREASED [None]
  - INSOMNIA [None]
